FAERS Safety Report 8073475-7 (Version None)
Quarter: 2012Q1

REPORT INFORMATION
  Report Type: 
  Country: None (occurrence: None)
  Receive Date: 20120126
  Receipt Date: 20120126
  Transmission Date: 20120608
  Serious: Yes (Other)
  Sender: FDA-Public Use
  Company Number: None

PATIENT
  Age: 21 Year
  Sex: Female
  Weight: 63.502 kg

DRUGS (5)
  1. MULTI-VITAMINS [Concomitant]
  2. MAGNESIUM SUPPLEMENT [Concomitant]
  3. VITAMIN C SUPPLEMENT [Concomitant]
  4. ATIVAN [Concomitant]
  5. CIPROFLOXACIN HCL [Suspect]
     Indication: URINARY TRACT INFECTION
     Dosage: 500MG
     Route: 048
     Dates: start: 20120104, end: 20120108

REACTIONS (18)
  - ARTHRALGIA [None]
  - PRURITUS GENERALISED [None]
  - BURNING SENSATION [None]
  - DIZZINESS [None]
  - RENAL PAIN [None]
  - PANIC ATTACK [None]
  - TINNITUS [None]
  - DEPRESSION SUICIDAL [None]
  - MYALGIA [None]
  - GENERAL PHYSICAL HEALTH DETERIORATION [None]
  - PHOTOPHOBIA [None]
  - INSOMNIA [None]
  - FATIGUE [None]
  - BACK PAIN [None]
  - PARAESTHESIA [None]
  - VITREOUS FLOATERS [None]
  - TACHYCARDIA [None]
  - TENDON PAIN [None]
